FAERS Safety Report 23606470 (Version 1)
Quarter: 2024Q1

REPORT INFORMATION
  Report Type: Spontaneous
  Country: CA (occurrence: CA)
  Receive Date: 20240307
  Receipt Date: 20240307
  Transmission Date: 20240409
  Serious: Yes (Other)
  Sender: FDA-Public Use
  Company Number: CA-Vifor Pharma-VIT-2024-00881

PATIENT
  Sex: Female
  Weight: 70 kg

DRUGS (2)
  1. KORSUVA [Suspect]
     Active Substance: DIFELIKEFALIN ACETATE
     Indication: Pruritus
     Dosage: 0.5 MCG/KG DOSE (0.5 ?G/KG)
     Route: 040
     Dates: start: 202305, end: 2023
  2. KORSUVA [Suspect]
     Active Substance: DIFELIKEFALIN ACETATE
     Dosage: 0.25 MCG/KG DOSE; HALF DOSE (0.25 ?G/KG)
     Route: 040
     Dates: start: 202401, end: 2024

REACTIONS (3)
  - Liver function test increased [Recovered/Resolved]
  - Diarrhoea [Recovered/Resolved]
  - Somnolence [Recovered/Resolved]

NARRATIVE: CASE EVENT DATE: 20230101
